FAERS Safety Report 5532364-X (Version None)
Quarter: 2007Q4

REPORT INFORMATION
  Report Type: 
  Country: None (occurrence: None)
  Receive Date: 20071203
  Receipt Date: 20071121
  Transmission Date: 20080405
  Serious: Yes (Hospitalization)
  Sender: FDA-Public Use
  Company Number: JP-AMGEN-US246844

PATIENT
  Sex: Female

DRUGS (5)
  1. ENBREL [Suspect]
     Indication: RHEUMATOID ARTHRITIS
     Route: 058
     Dates: start: 20070807, end: 20070904
  2. PREDNISOLONE [Suspect]
     Indication: RHEUMATOID ARTHRITIS
     Dosage: NOT SPECIFIED
     Route: 048
     Dates: start: 20010101, end: 20050101
  3. PREDNISOLONE [Suspect]
     Dosage: 15 MG, FREQUENCY NOT SPECIFIED
     Route: 048
     Dates: start: 20050101
  4. RHEUMATREX [Suspect]
     Indication: RHEUMATOID ARTHRITIS
     Route: 048
     Dates: start: 20060301
  5. RHEUMATREX [Suspect]
     Route: 048
     Dates: start: 20070905, end: 20070906

REACTIONS (1)
  - PNEUMOCYSTIS JIROVECI PNEUMONIA [None]
